FAERS Safety Report 5006277-6 (Version None)
Quarter: 2006Q2

REPORT INFORMATION
  Report Type: 
  Country: None (occurrence: None)
  Receive Date: 20060519
  Receipt Date: 20060501
  Transmission Date: 20061013
  Serious: Yes (Hospitalization)
  Sender: FDA-Public Use
  Company Number: US-BOEHRINGER INGELHEIM PHARMACEUTICALS, INC.-2006-BP-04903BP

PATIENT
  Age: 77 Year
  Sex: Female

DRUGS (4)
  1. MIRAPEX [Suspect]
     Indication: PARKINSON'S DISEASE
     Route: 048
     Dates: start: 20060209, end: 20060430
  2. MIRAPEX [Suspect]
     Route: 048
     Dates: start: 20030101, end: 20060208
  3. BAYER LOW DOSE [Concomitant]
  4. PHILIPS STOOL SOFTENER [Concomitant]
     Indication: CONSTIPATION
     Dates: end: 20060101

REACTIONS (4)
  - DEPRESSED LEVEL OF CONSCIOUSNESS [None]
  - DIFFICULTY IN WALKING [None]
  - MUSCULOSKELETAL STIFFNESS [None]
  - SOMNOLENCE [None]
